FAERS Safety Report 23806284 (Version 1)
Quarter: 2024Q2

REPORT INFORMATION
  Report Type: Spontaneous
  Country: US (occurrence: US)
  Receive Date: 20240502
  Receipt Date: 20240502
  Transmission Date: 20240716
  Serious: Yes (Other)
  Sender: FDA-Public Use
  Company Number: US-UCBSA-2024010350

PATIENT
  Age: 60 Year
  Sex: Female

DRUGS (1)
  1. CIMZIA [Suspect]
     Active Substance: CERTOLIZUMAB PEGOL
     Indication: Rheumatoid arthritis
     Dosage: 400 MILLIGRAM, UNK
     Dates: start: 20240215

REACTIONS (13)
  - Neuropathy peripheral [Unknown]
  - Muscular weakness [Unknown]
  - Fatigue [Unknown]
  - Peripheral swelling [Unknown]
  - Weight increased [Unknown]
  - Vision blurred [Unknown]
  - Contusion [Unknown]
  - Vascular pain [Unknown]
  - Dysphagia [Unknown]
  - Choking sensation [Unknown]
  - Musculoskeletal stiffness [Unknown]
  - Arthralgia [Unknown]
  - Gait disturbance [Unknown]

NARRATIVE: CASE EVENT DATE: 20240215
